FAERS Safety Report 6132625-X (Version None)
Quarter: 2009Q1

REPORT INFORMATION
  Report Type: 
  Country: None (occurrence: None)
  Receive Date: 20090324
  Receipt Date: 20090317
  Transmission Date: 20090719
  Serious: Yes (Death)
  Sender: FDA-Public Use
  Company Number: 2009-193335-NL

PATIENT
  Age: 54 Year
  Sex: Male

DRUGS (4)
  1. MIRTAZAPINE [Suspect]
  2. OLANZAPINE [Concomitant]
  3. PAXIL [Concomitant]
  4. TRAZODONE HCL [Concomitant]

REACTIONS (5)
  - ASTHENIA [None]
  - CARDIAC ARREST [None]
  - DIZZINESS [None]
  - NERVOUSNESS [None]
  - PALLOR [None]
